FAERS Safety Report 10576115 (Version 1)
Quarter: 2014Q4

REPORT INFORMATION
  Report Type: Spontaneous
  Country: US (occurrence: None)
  Receive Date: 20141110
  Receipt Date: 20141110
  Transmission Date: 20150529
  Serious: Yes (Life-Threatening, Hospitalization, Disabling)
  Sender: FDA-Public Use
  Company Number: None

PATIENT
  Age: 57 Year
  Sex: Male
  Weight: 79.83 kg

DRUGS (1)
  1. RITALIN [Suspect]
     Active Substance: METHYLPHENIDATE HYDROCHLORIDE
     Indication: ATTENTION DEFICIT/HYPERACTIVITY DISORDER
     Dosage: 1 TABLET THREE TIMES DAILY TAKEN BY MOUTH
     Route: 048

REACTIONS (5)
  - Dysuria [None]
  - Pain [None]
  - Panic disorder [None]
  - Anxiety [None]
  - Psoriatic arthropathy [None]

NARRATIVE: CASE EVENT DATE: 20141005
